FAERS Safety Report 8560879-9 (Version None)
Quarter: 2012Q3

REPORT INFORMATION
  Report Type: 
  Country: None (occurrence: None)
  Receive Date: 20120727
  Receipt Date: 20120727
  Transmission Date: 20120928
  Serious: Yes (Hospitalization)
  Sender: FDA-Public Use
  Company Number: None

PATIENT
  Age: 65 Year
  Sex: Male
  Weight: 63.6 kg

DRUGS (17)
  1. COMPAXINE [Concomitant]
  2. TEMAZEPAM [Concomitant]
  3. LIDODERM [Concomitant]
  4. COUMADIN [Suspect]
     Indication: PULMONARY EMBOLISM
     Dosage: 5 MG DAILY PO RECENT
     Route: 048
  5. CITALOPRAM HYDROBROMIDE [Concomitant]
  6. FLOMAX [Concomitant]
  7. OXYCONTIN [Concomitant]
  8. SENNA-MINT WAF [Concomitant]
  9. LEVOFLOXACIN [Suspect]
     Dosage: 500 MG DAILY PO RECENT
     Route: 048
  10. COMBIVENT [Concomitant]
  11. DRONABINOL [Concomitant]
  12. DOCUSATE [Concomitant]
  13. BENADRYL [Concomitant]
  14. TYLENOL [Concomitant]
  15. ATIVAN [Concomitant]
  16. OXYCODONE HCL [Concomitant]
  17. M.V.I. [Concomitant]

REACTIONS (3)
  - RETROPERITONEAL HAEMORRHAGE [None]
  - RENAL HAEMORRHAGE [None]
  - DRUG INTERACTION [None]
